FAERS Safety Report 20260703 (Version 1)
Quarter: 2021Q4

REPORT INFORMATION
  Report Type: Spontaneous
  Country: CA (occurrence: CA)
  Receive Date: 20211230
  Receipt Date: 20211230
  Transmission Date: 20220303
  Serious: Yes (Other)
  Sender: FDA-Public Use
  Company Number: CA-SAMSUNG BIOEPIS-SB-2021-30056

PATIENT
  Age: 46 Year
  Sex: Female
  Weight: 74 kg

DRUGS (2)
  1. INFLIXIMAB [Suspect]
     Active Substance: INFLIXIMAB
     Indication: Rheumatoid arthritis
     Route: 042
  2. METHOTREXATE [Concomitant]
     Active Substance: METHOTREXATE
     Indication: Rheumatoid arthritis
     Route: 058

REACTIONS (4)
  - Pruritus [Recovered/Resolved]
  - Weight decreased [Recovered/Resolved]
  - Incorrect dose administered [Recovered/Resolved]
  - Off label use [Recovered/Resolved]
